FAERS Safety Report 19806377 (Version 3)
Quarter: 2024Q2

REPORT INFORMATION
  Report Type: Other
  Country: CA (occurrence: CA)
  Receive Date: 20210909
  Receipt Date: 20240514
  Transmission Date: 20240716
  Serious: Yes (Other)
  Sender: FDA-Public Use
  Company Number: CA-TOLMAR, INC.-21CA029289

PATIENT
  Sex: Male

DRUGS (9)
  1. ELIGARD [Suspect]
     Active Substance: LEUPROLIDE ACETATE
     Indication: Prostate cancer
     Dosage: 45 MILLIGRAM, Q 6 MONTH
     Route: 058
     Dates: start: 20200317
  2. ELIGARD [Suspect]
     Active Substance: LEUPROLIDE ACETATE
     Dosage: 45 MILLIGRAM, Q 6 MONTH
     Route: 058
     Dates: start: 20210218
  3. ELIGARD [Suspect]
     Active Substance: LEUPROLIDE ACETATE
     Dosage: 45 MILLIGRAM, Q 6 MONTH
     Route: 058
     Dates: start: 20210806
  4. ELIGARD [Suspect]
     Active Substance: LEUPROLIDE ACETATE
     Dosage: 45 MILLIGRAM, Q 6 MONTH
     Route: 058
     Dates: start: 20231101
  5. ELIGARD [Suspect]
     Active Substance: LEUPROLIDE ACETATE
     Dosage: 45 MILLIGRAM, Q 6 MONTH
     Route: 058
     Dates: start: 20240416
  6. RADIATION THERAPY [Suspect]
     Active Substance: RADIATION THERAPY
     Indication: Lung neoplasm malignant
     Dosage: 35
  7. RADIATION THERAPY [Suspect]
     Active Substance: RADIATION THERAPY
     Indication: Prostate cancer
     Dosage: UNK
  8. UNSPECIFIED INGREDIENT [Suspect]
     Active Substance: UNSPECIFIED INGREDIENT
     Indication: Lung neoplasm malignant
     Dosage: 5 TREATMENTS PER WEEK
     Route: 042
  9. UNSPECIFIED INGREDIENT [Suspect]
     Active Substance: UNSPECIFIED INGREDIENT
     Indication: Lung neoplasm malignant
     Dosage: 11 TREATMENTS IN TOTAL AND HAS RECEIVED 9 AS OF NOW

REACTIONS (15)
  - Lung neoplasm malignant [Unknown]
  - Prostatic specific antigen increased [Recovering/Resolving]
  - Hepatic enzyme increased [Recovering/Resolving]
  - Mucosal inflammation [Recovering/Resolving]
  - Herpes zoster [Recovering/Resolving]
  - Weight decreased [Not Recovered/Not Resolved]
  - Pustule [Recovering/Resolving]
  - Dysphagia [Unknown]
  - Chest pain [Recovering/Resolving]
  - Oropharyngeal pain [Unknown]
  - Erythema [Recovering/Resolving]
  - Pain [Recovering/Resolving]
  - Hot flush [Unknown]
  - Injection site discomfort [Recovered/Resolved]
  - Injection site pain [Recovered/Resolved]

NARRATIVE: CASE EVENT DATE: 20200101
